FAERS Safety Report 20456801 (Version 3)
Quarter: 2022Q2

REPORT INFORMATION
  Report Type: Report from Study
  Country: US (occurrence: US)
  Receive Date: 20220210
  Receipt Date: 20220401
  Transmission Date: 20220720
  Serious: Yes (Other)
  Sender: FDA-Public Use
  Company Number: ABI2022000001(0)

PATIENT
  Age: 71 Year
  Sex: Male
  Weight: 88.4 kg

DRUGS (43)
  1. HUMAN IMMUNOGLOBULIN G [Suspect]
     Active Substance: HUMAN IMMUNOGLOBULIN G
     Indication: Immunodeficiency common variable
     Dosage: 7 DOSES (60 GM, AS DIRECTED)
     Route: 042
     Dates: start: 20210810, end: 20220125
  2. ASPIRIN [Concomitant]
     Active Substance: ASPIRIN
     Indication: Anticoagulant therapy
     Dosage: 81 MG, (1 IN 24 HR)
     Route: 048
  3. ALIGN [Concomitant]
     Active Substance: BIFIDOBACTERIUM LONGUM SUBSP. INFANTIS
     Indication: Supplementation therapy
     Dosage: 4 MG, (1 IN 24 HR)
     Route: 048
     Dates: start: 20210518
  4. VITAMIN B COMPLEX [Concomitant]
     Active Substance: CYANOCOBALAMIN\DEXPANTHENOL\NIACINAMIDE\PYRIDOXINE HYDROCHLORIDE\RIBOFLAVIN 5^-PHOSPHATE SODIUM\THIA
     Indication: Supplementation therapy
     Dosage: (1 IN 24 HR)
     Route: 048
     Dates: start: 20180112
  5. ALPHA LIPOIC ACID [Concomitant]
     Active Substance: .ALPHA.-LIPOIC ACID
     Indication: Supplementation therapy
     Dosage: 300 MG, (1 IN 24 HR)
     Route: 048
  6. CETIRIZINE [Concomitant]
     Active Substance: CETIRIZINE HYDROCHLORIDE
     Indication: Inflammation
     Dosage: 10 MG, (1 IN 24 HR)
     Route: 048
     Dates: start: 20210518
  7. CRESTOR [Concomitant]
     Active Substance: ROSUVASTATIN CALCIUM
     Indication: Blood cholesterol
     Dosage: 15 MG, (15 MG,1 IN 24 HR)
     Route: 048
  8. VITAMIN B12 [Concomitant]
     Active Substance: CYANOCOBALAMIN
     Indication: Supplementation therapy
     Dosage: 1000 MICROGRAM, QD
     Route: 048
  9. CYMBALTA [Concomitant]
     Active Substance: DULOXETINE HYDROCHLORIDE
     Indication: Headache
     Dosage: QD
     Route: 048
     Dates: start: 20130305
  10. FAMOTIDINE [Concomitant]
     Active Substance: FAMOTIDINE
     Indication: Gastrooesophageal reflux disease
     Dosage: BID
     Route: 048
  11. LEVOTHYROXINE SODIUM [Concomitant]
     Active Substance: LEVOTHYROXINE SODIUM
     Indication: Autoimmune thyroiditis
     Dosage: (25 MCG EVERY MORNING)
     Route: 048
     Dates: start: 20190414
  12. LEVOTHYROXINE SODIUM [Concomitant]
     Active Substance: LEVOTHYROXINE SODIUM
     Indication: Thyroid disorder
  13. GLUTAMINE [Concomitant]
     Active Substance: GLUTAMINE
     Indication: Supplementation therapy
     Dosage: 500 MG, (1 IN 1 D)
     Route: 048
     Dates: start: 20180112
  14. HERBALS\PLANTAGO OVATA SEED\PLANTAGO SEED [Concomitant]
     Active Substance: HERBALS\PLANTAGO OVATA SEED\PLANTAGO SEED
     Indication: Supplementation therapy
     Dosage: 3.12 GRAM, QD
     Route: 048
     Dates: start: 20151117
  15. MUCINEX [Concomitant]
     Active Substance: GUAIFENESIN
     Indication: Sinusitis
     Dosage: 2400 MG (1200 MG BID)
     Route: 048
  16. OMEGA 3 FISH OIL [FISH OIL] [Concomitant]
     Indication: Product used for unknown indication
     Dosage: 9600 MG (6 CAPSULES QD)
     Route: 048
  17. ONE A DAY MEN^S 50 + HEALTHY ADVANTAGE [Concomitant]
     Indication: Supplementation therapy
     Dosage: (1 IN 1 D)
     Route: 048
  18. STOOL SOFTENER (DOCUSATE) [Concomitant]
     Active Substance: DOCUSATE
     Indication: Constipation
     Dosage: 300 MG, (1 IN 1 D)
     Route: 065
     Dates: start: 20151117
  19. TIZANIDINE HYDROCHLORIDE [Concomitant]
     Active Substance: TIZANIDINE HYDROCHLORIDE
     Indication: Muscle spasms
     Dosage: PRN
     Route: 048
     Dates: start: 20210810
  20. UBIQUINOL [Concomitant]
     Active Substance: UBIQUINOL
     Indication: Supplementation therapy
     Dosage: 200 MG (09/JAN/2018)
     Route: 048
  21. ASCORBIC ACID [Concomitant]
     Active Substance: ASCORBIC ACID
     Indication: Supplementation therapy
     Dosage: 2000 MG, (1 IN 1 D)
     Route: 048
  22. VITAMIN D3 [Concomitant]
     Active Substance: CHOLECALCIFEROL
     Indication: Supplementation therapy
     Dosage: 5000 IU, QD
     Route: 048
  23. FOLIC ACID;IRON;PYRIDOXINE [Concomitant]
     Indication: Product used for unknown indication
     Dosage: UNK
     Route: 048
  24. HERBALS\VITIS VINIFERA SEED [Concomitant]
     Active Substance: HERBALS\VITIS VINIFERA SEED
     Indication: Supplementation therapy
     Dosage: (1 IN 1 D)
     Route: 048
     Dates: start: 20180112
  25. IBUPROFEN [Concomitant]
     Active Substance: IBUPROFEN
     Indication: Headache
     Dosage: 600 MG, (1 IN 1 D)
     Route: 048
  26. LIOTHYRONINE SODIUM [Concomitant]
     Active Substance: LIOTHYRONINE SODIUM
     Indication: Autoimmune thyroiditis
     Dosage: QD
     Route: 048
     Dates: start: 20190414
  27. LIOTHYRONINE SODIUM [Concomitant]
     Active Substance: LIOTHYRONINE SODIUM
     Indication: Thyroid disorder
  28. BUDESONIDE [Concomitant]
     Active Substance: BUDESONIDE
     Indication: Chronic sinusitis
     Dosage: (1 IN 1 D)
     Route: 045
  29. CALCIUM [Concomitant]
     Active Substance: CALCIUM
     Indication: Supplementation therapy
     Dosage: 120 MG (1 IN 1 D)
     Route: 048
     Dates: start: 20180112
  30. IODINE [Concomitant]
     Active Substance: IODINE
     Indication: Supplementation therapy
     Dosage: 150 MG (12/JAN/2018)
     Route: 048
  31. MAGNESIUM [Concomitant]
     Active Substance: MAGNESIUM
     Indication: Supplementation therapy
     Dosage: 110 MG (1 IN 1 D)
     Route: 048
     Dates: start: 20180112
  32. ZINC [Concomitant]
     Active Substance: ZINC
     Indication: Supplementation therapy
     Dosage: 24 MG (1 IN 1 D)
     Route: 048
     Dates: start: 20180112
  33. SELENIUM [Concomitant]
     Active Substance: SELENIUM
     Indication: Supplementation therapy
     Dosage: 117 MCG (1 IN 1 D)
     Route: 048
     Dates: start: 20180112
  34. COPPER [Concomitant]
     Active Substance: COPPER
     Indication: Supplementation therapy
     Dosage: 2.2 MG (1 IN 1 D)
     Route: 048
     Dates: start: 20180112
  35. MANGANESE [Concomitant]
     Active Substance: MANGANESE CHLORIDE
     Indication: Supplementation therapy
     Dosage: 4.2 MG (1 IN 1 D)
     Route: 048
     Dates: start: 20180112
  36. CHROMIUM [Concomitant]
     Active Substance: CHROMIC CHLORIDE\CHROMIUM
     Indication: Supplementation therapy
     Dosage: 180 MCG (1 IN 1 D)
     Route: 048
     Dates: start: 20180112
  37. MOLYBDENUM [Concomitant]
     Active Substance: MOLYBDENUM
     Indication: Supplementation therapy
     Dosage: 90 MCG ( 1 IN 1 D)
     Route: 048
     Dates: start: 20180112
  38. LYCOPENE [Concomitant]
     Active Substance: LYCOPENE
     Indication: Supplementation therapy
     Dosage: 370 MCG (1 IN 1 D)
     Route: 048
     Dates: start: 20180112
  39. VITAMIN K1 [Concomitant]
     Active Substance: PHYTONADIONE
     Indication: Supplementation therapy
     Dosage: 100 MCG (1 IN 1 D)
     Route: 048
     Dates: start: 20100929
  40. FOLATE NOS [Concomitant]
     Indication: Supplementation therapy
     Dosage: 400 MCG (1 IN 1 D)
     Route: 048
  41. VICKS DAYQUIL [Concomitant]
     Active Substance: DEXTROMETHORPHAN HYDROBROMIDE\GUAIFENESIN
     Indication: COVID-19
     Dosage: PRN
     Route: 048
     Dates: start: 20220101, end: 20220116
  42. VICKS NYQUIL [Concomitant]
     Active Substance: ACETAMINOPHEN\DEXTROMETHORPHAN HYDROBROMIDE\DOXYLAMINE SUCCINATE
     Indication: COVID-19
     Dosage: PRN
     Route: 048
     Dates: start: 20220101, end: 20220116
  43. NRF2 COMPLEX [Concomitant]
     Indication: Supplementation therapy
     Dosage: UNK (1 IN 1 D)
     Route: 048
     Dates: start: 20210518

REACTIONS (1)
  - Hypotension [Recovered/Resolved]

NARRATIVE: CASE EVENT DATE: 20220125
